FAERS Safety Report 10801304 (Version 3)
Quarter: 2016Q2

REPORT INFORMATION
  Report Type: Report from Study
  Country: GB (occurrence: GB)
  Receive Date: 20150217
  Receipt Date: 20160512
  Transmission Date: 20160815
  Serious: Yes (Other)
  Sender: FDA-Public Use
  Company Number: PHHY2014GB058205

PATIENT
  Age: 34 Year
  Sex: Female

DRUGS (2)
  1. GILENYA [Suspect]
     Active Substance: FINGOLIMOD HYDROCHLORIDE
     Indication: MULTIPLE SCLEROSIS
     Dosage: UNK UNK, QD
     Route: 048
     Dates: start: 20130821, end: 20150129
  2. GILENYA [Suspect]
     Active Substance: FINGOLIMOD HYDROCHLORIDE
     Dosage: UNK
     Route: 048
     Dates: start: 20160113

REACTIONS (7)
  - Depressed mood [Unknown]
  - White blood cell count decreased [Unknown]
  - Alanine aminotransferase increased [Unknown]
  - Maternal exposure during pregnancy [Unknown]
  - Lymphocyte count decreased [Unknown]
  - Optic neuropathy [Unknown]
  - Blood alkaline phosphatase increased [Unknown]

NARRATIVE: CASE EVENT DATE: 20131120
